FAERS Safety Report 8839940 (Version 1)
Quarter: 2012Q4

REPORT INFORMATION
  Report Type: 
  Country: US (occurrence: US)
  Receive Date: 20121015
  Receipt Date: 20121015
  Transmission Date: 20130627
  Serious: Yes (Death, Other)
  Sender: FDA-Public Use
  Company Number: US-BAYER-2012-105192

PATIENT
  Age: 60 Year
  Sex: Male

DRUGS (1)
  1. BETASERON [Suspect]
     Indication: MULTIPLE SCLEROSIS
     Dosage: 8 miu, QOD
     Route: 058
     Dates: start: 19990316, end: 20120814

REACTIONS (6)
  - Pancreatic carcinoma [None]
  - Hepatic cancer [None]
  - Renal cancer [None]
  - Lung neoplasm malignant [None]
  - Adrenal gland cancer [None]
  - Death [Fatal]
